FAERS Safety Report 8767214 (Version 1)
Quarter: 2012Q4

REPORT INFORMATION
  Report Type: 
  Country: CA (occurrence: CA)
  Receive Date: 20120904
  Receipt Date: 20120904
  Transmission Date: 20130627
  Serious: Yes (Other)
  Sender: FDA-Public Use
  Company Number: CA-SANOFI-AVENTIS-2012SA061891

PATIENT
  Age: 80 Year
  Sex: Female

DRUGS (3)
  1. LASIX [Suspect]
     Indication: CARDIAC INSUFFICIENCY
     Route: 048
     Dates: end: 20120515
  2. ZYVOXAM [Suspect]
     Indication: SEPTIC ARTHRITIS
     Route: 048
     Dates: start: 20120508
  3. ZYVOXAM [Suspect]
     Indication: INFECTION
     Route: 048
     Dates: start: 20120508

REACTIONS (2)
  - Renal failure [Unknown]
  - Blood creatinine increased [Unknown]
